FAERS Safety Report 16232608 (Version 1)
Quarter: 2019Q2

REPORT INFORMATION
  Report Type: Spontaneous
  Country: US (occurrence: US)
  Receive Date: 20190423
  Receipt Date: 20190423
  Transmission Date: 20190711
  Serious: Yes (Life-Threatening, Hospitalization, Congenital Anomaly)
  Sender: FDA-Public Use
  Company Number: None

PATIENT
  Age: 30 Year
  Sex: Female
  Weight: 90.72 kg

DRUGS (1)
  1. MIRENA [Suspect]
     Active Substance: LEVONORGESTREL

REACTIONS (14)
  - Contusion [None]
  - Neck pain [None]
  - Pregnancy with contraceptive device [None]
  - Back pain [None]
  - Ectopic pregnancy [None]
  - Nausea [None]
  - Internal haemorrhage [None]
  - Salpingectomy [None]
  - Dizziness [None]
  - Abdominal pain upper [None]
  - Loss of consciousness [None]
  - Migraine [None]
  - Fall [None]
  - Device dislocation [None]
